FAERS Safety Report 15620203 (Version 1)
Quarter: 2018Q4

REPORT INFORMATION
  Report Type: Spontaneous
  Country: BG (occurrence: BG)
  Receive Date: 20181115
  Receipt Date: 20181115
  Transmission Date: 20190205
  Serious: Yes (Hospitalization, Other)
  Sender: FDA-Public Use
  Company Number: BG-ASTRAZENECA-2018SF48623

PATIENT
  Age: 69 Year
  Sex: Female

DRUGS (4)
  1. HERBAL DIURETIC PREPARATION NOS [Concomitant]
  2. BRILIQUE [Suspect]
     Active Substance: TICAGRELOR
     Route: 048
  3. ATORVASTATIN [Concomitant]
     Active Substance: ATORVASTATIN
  4. ACETYLSALICYLIC ACID [Concomitant]
     Active Substance: ASPIRIN
     Dosage: 75.0MG UNKNOWN

REACTIONS (2)
  - Vascular stent stenosis [Unknown]
  - Coronary artery disease [Unknown]
